FAERS Safety Report 14711207 (Version 1)
Quarter: 2018Q2

REPORT INFORMATION
  Report Type: Spontaneous
  Country: CH (occurrence: CH)
  Receive Date: 20180403
  Receipt Date: 20180403
  Transmission Date: 20180711
  Serious: Yes (Other)
  Sender: FDA-Public Use
  Company Number: CH-AMGEN-CHESP2018042390

PATIENT
  Age: 55 Year
  Sex: Female
  Weight: 45 kg

DRUGS (6)
  1. PROLIA [Suspect]
     Active Substance: DENOSUMAB
     Indication: OSTEOPOROSIS
     Dosage: 60 MG, Q6MO
     Route: 058
     Dates: start: 20111205, end: 20170607
  2. ELTROXIN [Concomitant]
     Active Substance: LEVOTHYROXINE
     Dosage: UNK
     Dates: start: 2007
  3. PREDNISOLONE. [Concomitant]
     Active Substance: PREDNISOLONE
  4. VITAMIN D3 [Concomitant]
     Active Substance: CHOLECALCIFEROL
     Dosage: 300000 IU, UNK
     Route: 030
     Dates: start: 20131206
  5. CALCIUM [Concomitant]
     Active Substance: CALCIUM
     Dosage: 400 MG, QD
  6. VITAMIN D [Concomitant]
     Active Substance: CHOLECALCIFEROL

REACTIONS (4)
  - Gingival recession [Unknown]
  - Tooth loss [Unknown]
  - Oropharyngeal plaque [Unknown]
  - Osteonecrosis of jaw [Unknown]
